FAERS Safety Report 9259883 (Version 2)
Quarter: 2013Q3

REPORT INFORMATION
  Report Type: Spontaneous
  Country: US (occurrence: US)
  Receive Date: 20130429
  Receipt Date: 20130704
  Transmission Date: 20140515
  Serious: Yes (Hospitalization, Disabling)
  Sender: FDA-Public Use
  Company Number: US-ASTRAZENECA-2013SE27551

PATIENT
  Age: 14385 Day
  Sex: Female

DRUGS (13)
  1. NEXIUM [Suspect]
     Indication: GASTROOESOPHAGEAL REFLUX DISEASE
     Route: 048
     Dates: start: 20041122, end: 20080424
  2. NEXIUM [Suspect]
     Indication: DYSPEPSIA
     Route: 048
     Dates: start: 20041122, end: 20080424
  3. PRILOSEC OTC [Suspect]
     Route: 048
  4. PREVACID [Concomitant]
  5. ZANTAC [Concomitant]
     Dates: start: 20081220
  6. TUMS [Concomitant]
  7. MYLANTA [Concomitant]
  8. ROLAIDS [Concomitant]
  9. LISINOPRIL [Concomitant]
  10. PROMARIN [Concomitant]
  11. LORTAB [Concomitant]
     Dosage: 10/500
     Dates: start: 20120316
  12. IBUPROFEN [Concomitant]
     Indication: PAIN
  13. ESTRADIOL [Concomitant]
     Route: 048

REACTIONS (14)
  - Hysterectomy [Unknown]
  - Pain in extremity [Unknown]
  - Foot fracture [Unknown]
  - Back pain [Unknown]
  - Osteoporosis [Unknown]
  - Bone density decreased [Unknown]
  - Multiple fractures [Unknown]
  - Tendonitis [Unknown]
  - Neck pain [Unknown]
  - Crohn^s disease [Unknown]
  - Intervertebral disc disorder [Unknown]
  - Oedema peripheral [Unknown]
  - Abdominal pain upper [Unknown]
  - Intervertebral disc degeneration [Unknown]
